FAERS Safety Report 9778351 (Version 1)
Quarter: 2013Q4

REPORT INFORMATION
  Report Type: Spontaneous
  Country: US (occurrence: US)
  Receive Date: 20131223
  Receipt Date: 20131223
  Transmission Date: 20140711
  Serious: Yes (Death, Other)
  Sender: FDA-Public Use
  Company Number: US-AMGEN-USASP2013089573

PATIENT
  Age: 71 Year
  Sex: Female

DRUGS (1)
  1. ENBREL [Suspect]
     Indication: RHEUMATOID ARTHRITIS
     Dosage: 1 VIAL, 2 TIMES/WK
     Route: 058
     Dates: start: 200801

REACTIONS (3)
  - Ventricular fibrillation [Fatal]
  - Cardio-respiratory arrest [Fatal]
  - Bedridden [Unknown]
